FAERS Safety Report 6681563-2 (Version None)
Quarter: 2010Q2

REPORT INFORMATION
  Report Type: 
  Country: None (occurrence: None)
  Receive Date: 20100414
  Receipt Date: 20100407
  Transmission Date: 20101027
  Serious: Yes (Other)
  Sender: FDA-Public Use
  Company Number: PHHY2010US21929

PATIENT
  Age: 18 Year

DRUGS (1)
  1. TRILEPTAL [Suspect]

REACTIONS (1)
  - HYPONATRAEMIA [None]
